FAERS Safety Report 4344773-5 (Version None)
Quarter: 2004Q2

REPORT INFORMATION
  Report Type: 
  Country: None (occurrence: None)
  Receive Date: 20040423
  Receipt Date: 20040114
  Transmission Date: 20050107
  Serious: No
  Sender: FDA-Public Use
  Company Number: US-GLAXOSMITHKLINE-A0493261A

PATIENT
  Age: 81 Year
  Sex: Male

DRUGS (1)
  1. LEUKERAN [Suspect]
     Route: 048
     Dates: start: 20031001, end: 20031101

REACTIONS (3)
  - ANOREXIA [None]
  - RASH [None]
  - WEIGHT DECREASED [None]
